FAERS Safety Report 9728296 (Version 3)
Quarter: 2015Q2

REPORT INFORMATION
  Report Type: Spontaneous
  Country: ES (occurrence: ES)
  Receive Date: 20131204
  Receipt Date: 20150521
  Transmission Date: 20150821
  Serious: Yes (Other)
  Sender: FDA-Public Use
  Company Number: ES-009507513-1311ESP012813

PATIENT
  Age: 89 Year
  Sex: Male
  Weight: 81 kg

DRUGS (5)
  1. HYDROXOCOBALAMIN (+) PYRIDOXINE (+) THIAMINE [Concomitant]
     Dosage: UNK
     Route: 048
     Dates: start: 20110204
  2. AERIUS [Suspect]
     Active Substance: DESLORATADINE
     Indication: PRODUCT USED FOR UNKNOWN INDICATION
     Dosage: 5 MG, QD
     Route: 048
     Dates: start: 20130313, end: 20130627
  3. LEVOTHYROXINE SODIUM. [Concomitant]
     Active Substance: LEVOTHYROXINE SODIUM
     Dosage: 75 MICROGRAM, QD
     Route: 048
     Dates: start: 20120213
  4. SERTRALINE HYDROCHLORIDE. [Concomitant]
     Active Substance: SERTRALINE HYDROCHLORIDE
     Dosage: 50 MG, QD
     Route: 048
     Dates: start: 20110425
  5. VITAMINS (UNSPECIFIED) [Concomitant]
     Active Substance: VITAMINS

REACTIONS (3)
  - Bradycardia [Recovered/Resolved]
  - Electrocardiogram QT prolonged [Recovered/Resolved]
  - Atrioventricular block first degree [Recovered/Resolved]

NARRATIVE: CASE EVENT DATE: 20130627
